FAERS Safety Report 7929452-7 (Version None)
Quarter: 2011Q4

REPORT INFORMATION
  Report Type: 
  Country: None (occurrence: None)
  Receive Date: 20111121
  Receipt Date: 20111114
  Transmission Date: 20120403
  Serious: Yes (Death, Hospitalization)
  Sender: FDA-Public Use
  Company Number: JP-BRISTOL-MYERS SQUIBB COMPANY-15918378

PATIENT
  Age: 70 Year
  Sex: Male

DRUGS (6)
  1. ORENCIA [Suspect]
     Indication: MUSCULOSKELETAL PAIN
     Dosage: NO OF DOSE: 5. 1DF= 500MG/BODY. DATE OF ADMIN: 26MAR11,9APR11,7MAY11.
     Route: 041
     Dates: start: 20110312, end: 20110604
  2. LYRICA [Concomitant]
     Indication: SPINAL OSTEOARTHRITIS
  3. PREDNISONE TAB [Concomitant]
  4. ACTONEL [Concomitant]
     Indication: OSTEOPOROSIS
  5. ISONIAZID [Concomitant]
     Indication: TUBERCULOSIS
  6. CELECOXIB [Concomitant]
     Indication: RHEUMATOID ARTHRITIS

REACTIONS (2)
  - DEATH [None]
  - PNEUMONIA [None]
